FAERS Safety Report 7875043-6 (Version None)
Quarter: 2011Q4

REPORT INFORMATION
  Report Type: 
  Country: None (occurrence: None)
  Receive Date: 20111003
  Receipt Date: 20110316
  Transmission Date: 20120403
  Serious: Yes (Life-Threatening, Other)
  Sender: FDA-Public Use
  Company Number: 272116USA

PATIENT
  Age: 54 Year
  Sex: Female

DRUGS (5)
  1. SIMVASTATIN [Concomitant]
  2. BUPROPION HCL [Suspect]
     Indication: DEPRESSION
     Dosage: XL (150 MG, 1 IN 1 D), ORAL
     Route: 048
     Dates: start: 20110101, end: 20110201
  3. ANTIVIRALS NOS [Concomitant]
  4. VENLAFAXINE HYDROCHLORIDE [Suspect]
     Indication: DEPRESSION
     Dosage: 3 TABLETS (75 MG, 3 IN 1 D), ORAL
     Route: 048
     Dates: start: 20110101, end: 20110201
  5. TETRYZOLINE HYDROCHLORIDE [Concomitant]

REACTIONS (4)
  - SUICIDE ATTEMPT [None]
  - TREATMENT FAILURE [None]
  - CONDITION AGGRAVATED [None]
  - DEPRESSION [None]
